FAERS Safety Report 8292913-8 (Version None)
Quarter: 2012Q2

REPORT INFORMATION
  Report Type: 
  Country: None (occurrence: None)
  Receive Date: 20120417
  Receipt Date: 20110810
  Transmission Date: 20120825
  Serious: No
  Sender: FDA-Public Use
  Company Number: US-ASTRAZENECA-2011SE48301

PATIENT
  Age: 23558 Day
  Sex: Male

DRUGS (1)
  1. NEXIUM [Suspect]
     Indication: ABDOMINAL DISCOMFORT
     Route: 048
     Dates: start: 20110810

REACTIONS (3)
  - DYSPNOEA [None]
  - OFF LABEL USE [None]
  - PYREXIA [None]
